FAERS Safety Report 8090232 (Version 4)
Quarter: 2012Q4

REPORT INFORMATION
  Report Type: 
  Country: US (occurrence: US)
  Receive Date: 20110815
  Receipt Date: 20120907
  Transmission Date: 20130627
  Serious: Yes (Hospitalization)
  Sender: FDA-Public Use
  Company Number: US-GLAXOSMITHKLINE-A0940236A

PATIENT
  Age: 52 Year
  Sex: Female

DRUGS (6)
  1. LAMICTAL XR [Suspect]
     Indication: CONVULSION
     Dosage: 300MG Per day
     Route: 048
     Dates: start: 201009
  2. LAMOTRIGINE [Suspect]
     Indication: CONVULSION
     Dosage: 100MG Three times per day
     Route: 048
     Dates: start: 20110201, end: 20110206
  3. LISINOPRIL [Concomitant]
  4. DEMADEX [Concomitant]
  5. NEURONTIN [Concomitant]
  6. SATOLOL [Concomitant]

REACTIONS (9)
  - Vomiting [Recovered/Resolved]
  - Nausea [Recovered/Resolved]
  - Migraine [Recovered/Resolved]
  - Visual impairment [Not Recovered/Not Resolved]
  - Diplopia [Not Recovered/Not Resolved]
  - Vision blurred [Not Recovered/Not Resolved]
  - Visual acuity reduced [Not Recovered/Not Resolved]
  - Amnesia [Not Recovered/Not Resolved]
  - Adverse event [Unknown]
